FAERS Safety Report 20262846 (Version 1)
Quarter: 2021Q4

REPORT INFORMATION
  Report Type: Spontaneous
  Country: US (occurrence: US)
  Receive Date: 20211231
  Receipt Date: 20211231
  Transmission Date: 20220303
  Serious: No
  Sender: FDA-Public Use
  Company Number: US-009507513-2112USA002622

PATIENT
  Sex: Female

DRUGS (3)
  1. KEYTRUDA [Suspect]
     Active Substance: PEMBROLIZUMAB
     Dosage: EVERY 3 WEEKS
  2. ZEJULA [Suspect]
     Active Substance: NIRAPARIB
     Indication: Fallopian tube cancer
     Dosage: UNK
     Route: 048
     Dates: start: 20200305
  3. ZEJULA [Suspect]
     Active Substance: NIRAPARIB
     Dosage: 200 MG (2 CAPSULES) ONCE DAILY (AT TIME OF ADVERSE EVENTS)(INCREASED, DOUBLE DOSE)
     Route: 048
     Dates: start: 20210614

REACTIONS (5)
  - Headache [Not Recovered/Not Resolved]
  - Diarrhoea [Unknown]
  - Arthralgia [Not Recovered/Not Resolved]
  - Product distribution issue [Unknown]
  - Product dose omission issue [Unknown]

NARRATIVE: CASE EVENT DATE: 20210101
